FAERS Safety Report 7665758 (Version 2)
Quarter: 2013Q2

REPORT INFORMATION
  Report Type: Spontaneous
  Country: US (occurrence: US)
  Receive Date: 20101112
  Receipt Date: 20130426
  Transmission Date: 20140414
  Serious: Yes (Death, Hospitalization, Other)
  Sender: FDA-Public Use
  Company Number: US-PFIZER INC-2010139821

PATIENT
  Age: 84 Year
  Sex: Female

DRUGS (6)
  1. DILANTIN-125 [Suspect]
     Indication: PARTIAL SEIZURES
     Dosage: UNK
     Route: 048
  2. DILANTIN-125 [Suspect]
     Dosage: 100 MG, 2X/DAY
     Route: 048
     Dates: start: 20080925
  3. DILANTIN-125 [Suspect]
     Dosage: 150 MG, UNK
     Route: 048
     Dates: start: 20081005
  4. DILANTIN-125 [Suspect]
     Dosage: 300 MG, 3X/DAY
     Route: 048
     Dates: start: 20081005
  5. DILANTIN-125 [Suspect]
     Dosage: 200 MG, 2X/DAY
     Route: 048
     Dates: start: 20081018
  6. NYSTATIN [Concomitant]
     Dosage: 5 ML, 3X/DAY, AS NEEDED
     Route: 048
     Dates: start: 20080911

REACTIONS (1)
  - Stevens-Johnson syndrome [Fatal]
